FAERS Safety Report 11544449 (Version 2)
Quarter: 2015Q4

REPORT INFORMATION
  Report Type: Spontaneous
  Country: US (occurrence: US)
  Receive Date: 20150924
  Receipt Date: 20151109
  Transmission Date: 20160304
  Serious: No
  Sender: FDA-Public Use
  Company Number: US-PFIZER INC-2015316792

PATIENT
  Age: 3 Month
  Sex: Female
  Weight: 6 kg

DRUGS (1)
  1. ZOLOFT [Suspect]
     Active Substance: SERTRALINE HYDROCHLORIDE
     Indication: POSTPARTUM DEPRESSION
     Dosage: 50 MG, DAILY
     Route: 063
     Dates: start: 20150706, end: 2015

REACTIONS (3)
  - Eye discharge [Unknown]
  - Exposure during breast feeding [Unknown]
  - Dermatophytosis of nail [Recovering/Resolving]

NARRATIVE: CASE EVENT DATE: 20150706
